FAERS Safety Report 7520571-6 (Version None)
Quarter: 2011Q2

REPORT INFORMATION
  Report Type: 
  Country: None (occurrence: None)
  Receive Date: 20110603
  Receipt Date: 20110524
  Transmission Date: 20111010
  Serious: Yes (Hospitalization)
  Sender: FDA-Public Use
  Company Number: US-BIOGENIDEC-2010BI039801

PATIENT
  Age: 26 Year
  Sex: Female

DRUGS (4)
  1. TYSABRI [Suspect]
     Indication: CROHN'S DISEASE
     Route: 042
     Dates: start: 20100503
  2. FLINTSTONE VITAMINS [Concomitant]
  3. FOLIC ACID [Concomitant]
     Dates: start: 20100801
  4. VIACTIVE [Concomitant]

REACTIONS (2)
  - CAESAREAN SECTION [None]
  - PREGNANCY [None]
